FAERS Safety Report 8893625 (Version 2)
Quarter: 2012Q4

REPORT INFORMATION
  Report Type: 
  Country: JP (occurrence: JP)
  Receive Date: 20121108
  Receipt Date: 20121128
  Transmission Date: 20130627
  Serious: Yes (Death)
  Sender: FDA-Public Use
  Company Number: JP-JNJFOC-20121102563

PATIENT
  Age: 83 Year
  Sex: Female
  Weight: 38 kg

DRUGS (6)
  1. XARELTO [Suspect]
     Indication: THROMBOSIS PROPHYLAXIS
     Route: 048
     Dates: start: 20120921, end: 20120928
  2. OMEPRAL [Concomitant]
     Indication: PEPTIC ULCER
     Route: 048
  3. CRESTOR [Concomitant]
     Indication: HYPERCHOLESTEROLAEMIA
     Route: 048
     Dates: start: 20100507
  4. THYRADIN S [Concomitant]
     Indication: HYPOTHYROIDISM
     Route: 048
  5. GRAMALIL [Concomitant]
     Indication: INSOMNIA
     Route: 048
     Dates: start: 20120629
  6. PRADAXA [Concomitant]
     Route: 065
     Dates: start: 20120427, end: 20120920

REACTIONS (1)
  - Lung neoplasm malignant [Fatal]
